FAERS Safety Report 7380640-0 (Version None)
Quarter: 2011Q1

REPORT INFORMATION
  Report Type: 
  Country: None (occurrence: None)
  Receive Date: 20110329
  Receipt Date: 20110318
  Transmission Date: 20110831
  Serious: Yes (Hospitalization)
  Sender: FDA-Public Use
  Company Number: JP-ASTRAZENECA-2011SE16983

PATIENT
  Age: 30 Year
  Sex: Male

DRUGS (4)
  1. MEROPENEM [Suspect]
     Indication: FEBRILE NEUTROPENIA
     Route: 042
  2. BLEOMYCIN HYDROCHLORIDE [Suspect]
  3. CISPLATIN [Suspect]
  4. ETOPOSIDE [Suspect]

REACTIONS (2)
  - HEPATIC FUNCTION ABNORMAL [None]
  - FEBRILE NEUTROPENIA [None]
